FAERS Safety Report 4598559-7 (Version None)
Quarter: 2005Q1

REPORT INFORMATION
  Report Type: 
  Country: None (occurrence: None)
  Receive Date: 20050304
  Receipt Date: 20041111
  Transmission Date: 20050727
  Serious: Yes (Hospitalization)
  Sender: FDA-Public Use
  Company Number: AT-ROCHE-386084

PATIENT
  Age: 56 Year
  Sex: Male
  Weight: 95 kg

DRUGS (9)
  1. RIBAVIRIN [Suspect]
     Route: 048
     Dates: start: 20040427, end: 20041109
  2. RIBAVIRIN [Suspect]
     Route: 048
     Dates: start: 20041110
  3. PEG-INTERFERON ALFA 2A (RO 25-8310) [Suspect]
     Route: 058
     Dates: start: 20040427
  4. PANTOPRAZOLE SODIUM [Concomitant]
     Dates: start: 20041109
  5. AMARYL [Concomitant]
  6. ORACEF [Concomitant]
  7. GENERIC UNKNOWN [Concomitant]
     Dosage: DRUG NAME REPORTED AS: ALLOSTAD
  8. BELOC [Concomitant]
  9. RULIDE [Concomitant]

REACTIONS (5)
  - GASTRITIS [None]
  - NAUSEA [None]
  - PNEUMONIA [None]
  - VIRAL INFECTION [None]
  - VOMITING [None]
